FAERS Safety Report 5893672-6 (Version None)
Quarter: 2008Q3

REPORT INFORMATION
  Report Type: 
  Country: None (occurrence: None)
  Receive Date: 20080923
  Receipt Date: 20071008
  Transmission Date: 20090109
  Serious: No
  Sender: FDA-Public Use
  Company Number: US-ASTRAZENECA-2007UW23407

PATIENT
  Sex: Female

DRUGS (1)
  1. SEROQUEL [Suspect]
     Dosage: 50 MG IN MORNING, 400 AT NIGHT
     Route: 048
     Dates: start: 20070401

REACTIONS (2)
  - DRUG SCREEN FALSE POSITIVE [None]
  - LETHARGY [None]
